FAERS Safety Report 4456102-7 (Version None)
Quarter: 2004Q3

REPORT INFORMATION
  Report Type: 
  Country: None (occurrence: None)
  Receive Date: 20040920
  Receipt Date: 20040909
  Transmission Date: 20050211
  Serious: Yes (Hospitalization)
  Sender: FDA-Public Use
  Company Number: 2004-BP-07884RO

PATIENT
  Age: 70 Year
  Sex: Female

DRUGS (2)
  1. LEUCOVORIN CALCIUM [Suspect]
     Indication: COLON CANCER
     Dosage: 75 MG, PO
     Route: 048
  2. UFT [Suspect]
     Indication: COLON CANCER
     Dosage: 2.25 G, PO
     Route: 048

REACTIONS (3)
  - ESCHERICHIA SEPSIS [None]
  - NAUSEA [None]
  - VOMITING [None]
